FAERS Safety Report 24703337 (Version 1)
Quarter: 2024Q4

REPORT INFORMATION
  Report Type: Spontaneous
  Country: US (occurrence: US)
  Receive Date: 20241205
  Receipt Date: 20241205
  Transmission Date: 20250114
  Serious: No
  Sender: BRISTOL-MYERS SQUIBB COMPANY
  Company Number: US-BRISTOL-MYERS SQUIBB COMPANY-2024-189106

PATIENT
  Age: 79 Year
  Sex: Male
  Weight: 115.21 kg

DRUGS (1)
  1. REVLIMID [Suspect]
     Active Substance: LENALIDOMIDE
     Indication: Plasma cell myeloma
     Dosage: 3WKSON, 1WKOFF.
     Route: 048
     Dates: start: 202306, end: 202411

REACTIONS (1)
  - Lung disorder [Recovering/Resolving]
